FAERS Safety Report 13459357 (Version 1)
Quarter: 2017Q2

REPORT INFORMATION
  Report Type: Spontaneous
  Country: PL (occurrence: PL)
  Receive Date: 20170419
  Receipt Date: 20170419
  Transmission Date: 20170830
  Serious: Yes (Other)
  Sender: FDA-Public Use
  Company Number: PHHY2017PL054108

PATIENT
  Age: 9 Year
  Sex: Male
  Weight: 27 kg

DRUGS (1)
  1. OMNITROPE [Suspect]
     Active Substance: SOMATROPIN
     Indication: HYPOPITUITARISM
     Dosage: 4.3 MG, QW
     Route: 058
     Dates: start: 20160323, end: 20170223

REACTIONS (1)
  - Cerebellar tumour [Recovering/Resolving]

NARRATIVE: CASE EVENT DATE: 20170222
